FAERS Safety Report 7690227-8 (Version None)
Quarter: 2011Q3

REPORT INFORMATION
  Report Type: 
  Country: None (occurrence: None)
  Receive Date: 20110812
  Receipt Date: 20110801
  Transmission Date: 20111222
  Serious: Yes (Death, Life-Threatening, Hospitalization)
  Sender: FDA-Public Use
  Company Number: WAES 0802SWE00019

PATIENT
  Age: 64 Year
  Sex: Male

DRUGS (12)
  1. DIAZEPAM [Concomitant]
  2. IBUPROFEN [Concomitant]
  3. TROPISETRON [Concomitant]
  4. ACETAMINOPHEN W/ CODEINE [Concomitant]
  5. ONDANSETRON [Concomitant]
  6. FINASTERIDE [Concomitant]
  7. CAP VORINOSTAT [Suspect]
     Indication: PLEURAL MESOTHELIOMA MALIGNANT
     Dosage: 300 MG/BID/PO
     Route: 048
     Dates: start: 20080204, end: 20080308
  8. TRAMADOL HCL [Concomitant]
  9. ACETAMINOPHEN [Concomitant]
  10. HALOPERIDOL [Concomitant]
  11. METOELOPRAMIDE OMEPRAZOLE [Concomitant]
  12. PROPIOMAZINE [Concomitant]

REACTIONS (2)
  - DISEASE PROGRESSION [None]
  - PLEURAL MESOTHELIOMA MALIGNANT [None]
